FAERS Safety Report 8321850-5 (Version None)
Quarter: 2012Q2

REPORT INFORMATION
  Report Type: 
  Country: None (occurrence: None)
  Receive Date: 20120430
  Receipt Date: 20120417
  Transmission Date: 20120825
  Serious: Yes (Hospitalization)
  Sender: FDA-Public Use
  Company Number: FR-VIIV HEALTHCARE LIMITED-B0778551A

PATIENT
  Sex: Female
  Weight: 106 kg

DRUGS (7)
  1. DEPAKOTE [Concomitant]
     Dosage: 500MG FIVE TIMES PER DAY
  2. METFORMIN HCL [Concomitant]
     Dosage: 1000MG THREE TIMES PER DAY
  3. CRESTOR [Concomitant]
     Dosage: 10MG PER DAY
  4. MARAVIROC [Suspect]
     Indication: HIV INFECTION
     Dosage: 300MG TWICE PER DAY
     Route: 065
     Dates: start: 20091119
  5. LOXAPINE HCL [Concomitant]
     Dosage: 50MG FOUR TIMES PER DAY
  6. RAMIPRIL [Concomitant]
     Dosage: 10MG PER DAY
  7. TRUVADA [Suspect]
     Indication: HIV INFECTION
     Dosage: 1UNIT PER DAY
     Route: 065
     Dates: start: 20091119

REACTIONS (1)
  - KAPOSI'S SARCOMA [None]
